FAERS Safety Report 4654741-1 (Version None)
Quarter: 2005Q2

REPORT INFORMATION
  Report Type: 
  Country: None (occurrence: None)
  Receive Date: 20050505
  Receipt Date: 20050505
  Transmission Date: 20051028
  Serious: No
  Sender: FDA-Public Use
  Company Number: None

PATIENT
  Sex: Male
  Weight: 93.6 kg

DRUGS (3)
  1. TEMOZOLOMIDE [Suspect]
     Dates: start: 20050426
  2. RADIATION THERAPY  (XRT) [Suspect]
     Dates: start: 20060426
  3. DEXAMETHASONE [Concomitant]

REACTIONS (3)
  - MANIA [None]
  - PERSONALITY CHANGE [None]
  - RASH [None]
